FAERS Safety Report 9437398 (Version 1)
Quarter: 2013Q3

REPORT INFORMATION
  Report Type: Report from Study
  Country: CA (occurrence: CA)
  Receive Date: 20130802
  Receipt Date: 20130802
  Transmission Date: 20140515
  Serious: Yes (Hospitalization)
  Sender: FDA-Public Use
  Company Number: CA-JNJFOC-20130716978

PATIENT
  Age: 58 Year
  Sex: Female

DRUGS (15)
  1. REMICADE [Suspect]
     Indication: COLITIS ULCERATIVE
     Route: 042
  2. TAMOXIFEN [Suspect]
     Indication: PRODUCT USED FOR UNKNOWN INDICATION
     Route: 065
  3. ESOMEPRAZOLE [Concomitant]
     Route: 065
  4. SYNTHROID [Concomitant]
     Route: 065
  5. ONDANSETRON [Concomitant]
     Route: 065
  6. DICLOFENAC [Concomitant]
     Route: 065
  7. BACLOFEN [Concomitant]
     Route: 065
  8. SENNOSIDE [Concomitant]
     Route: 065
  9. DOCUSATE [Concomitant]
     Route: 065
  10. VITAMIN D [Concomitant]
     Route: 065
  11. ALPHAGAN [Concomitant]
     Route: 065
  12. NEVANAC [Concomitant]
     Route: 065
  13. DORZOLAMIDE [Concomitant]
     Route: 065
  14. CIPRODEX [Concomitant]
     Route: 047
  15. DILAUDID [Concomitant]
     Route: 065

REACTIONS (5)
  - Diarrhoea [Unknown]
  - Nausea [Unknown]
  - Dehydration [Unknown]
  - Blood pressure decreased [Unknown]
  - Depressed level of consciousness [Unknown]
